FAERS Safety Report 15276811 (Version 1)
Quarter: 2018Q4

REPORT INFORMATION
  Report Type: Other
  Country: IE (occurrence: IE)
  Receive Date: 20180814
  Receipt Date: 20180814
  Transmission Date: 20190204
  Serious: Yes (Other)
  Sender: FDA-Public Use
  Company Number: IE-NALPROPION PHARMACEUTICALS INC-2053708

PATIENT
  Age: 54 Year
  Sex: Female

DRUGS (23)
  1. INDERAL [Concomitant]
     Active Substance: PROPRANOLOL HYDROCHLORIDE
     Route: 048
  2. VERSATIS - LIDOCAINE [Concomitant]
     Route: 003
  3. TOPAMAX [Concomitant]
     Active Substance: TOPIRAMATE
     Route: 048
  4. CONTRAVE [Suspect]
     Active Substance: BUPROPION HYDROCHLORIDE\NALTREXONE HYDROCHLORIDE
     Indication: WEIGHT CONTROL
     Route: 048
     Dates: start: 20171208
  5. MOVICOL - MACROGOL 3350, POTASSIUM CHLORIDE, SODIUM BICARBONATE, SODIU [Concomitant]
     Route: 048
  6. NEOCLARITYN - DESLORATADINE [Concomitant]
     Route: 048
  7. VICTOZA [Concomitant]
     Active Substance: LIRAGLUTIDE
     Route: 065
  8. ELOCON [Concomitant]
     Active Substance: MOMETASONE FUROATE
     Route: 058
  9. CALCICHEW D3 FORTE - CALCIUM CARBONATE, COLECALCIFEROL [Concomitant]
     Route: 048
  10. LOSEC MUPS - OMEPRAZOLE MAGNESIUM [Concomitant]
     Route: 048
  11. NASACORT [Concomitant]
     Active Substance: TRIAMCINOLONE ACETONIDE
     Route: 055
  12. OXYNORM - OXYCODONE HYDROCHLORIDE [Concomitant]
     Route: 048
  13. TARGIN -NALOXONE HYDROCHLORIDE, OXYCODONE HYDROCHLORIDE [Concomitant]
     Route: 048
  14. CIPRAMIL - CITALOPRAM HYDROBROMIDE [Concomitant]
     Route: 048
  15. ELTROXIN - LEVOTHYROXINE SODIUM [Concomitant]
     Route: 048
  16. THYBON - LIOTHYRONINE HYDROCHLORIDE [Concomitant]
     Route: 048
  17. LIORESAL [Concomitant]
     Active Substance: BACLOFEN
     Route: 048
  18. FROVEX - FROVATRIPTAN SUCCINATE MONOHYDRATE [Concomitant]
     Route: 048
  19. OMESAR - OMEPRAZOLE [Concomitant]
     Route: 048
  20. BETNOVATE - BETAMETHASONE VALERATE [Concomitant]
     Route: 065
  21. CERAZETTE - CEFALORIDINE [Concomitant]
     Route: 065
  22. QUININE SULPHATE [Concomitant]
     Active Substance: QUININE SULFATE
     Route: 048
  23. XYZAL [Concomitant]
     Active Substance: LEVOCETIRIZINE DIHYDROCHLORIDE
     Route: 048

REACTIONS (8)
  - Hyperhidrosis [Recovering/Resolving]
  - Feeling cold [Recovering/Resolving]
  - Hyperventilation [Recovering/Resolving]
  - Glassy eyes [Recovering/Resolving]
  - Insomnia [Recovering/Resolving]
  - Myoclonus [Recovering/Resolving]
  - Muscle spasms [Recovering/Resolving]
  - Hot flush [Recovering/Resolving]

NARRATIVE: CASE EVENT DATE: 20171208
